FAERS Safety Report 5060808-9 (Version None)
Quarter: 2006Q3

REPORT INFORMATION
  Report Type: 
  Country: None (occurrence: None)
  Receive Date: 20060720
  Receipt Date: 20060720
  Transmission Date: 20061208
  Serious: Yes (Hospitalization)
  Sender: FDA-Public Use
  Company Number: None

PATIENT
  Age: 68 Year
  Sex: Male

DRUGS (2)
  1. VELCADE [Suspect]
     Indication: DIFFUSE LARGE B-CELL LYMPHOMA
     Dosage: IV    DAY 1 + 4 OF 21 DAY CYCLE
     Route: 042
     Dates: start: 20060311, end: 20060713
  2. R-CHOP [Suspect]
     Indication: DIFFUSE LARGE B-CELL LYMPHOMA
     Dosage: DAY 1 OF A 21 DAY CYCLE
     Dates: start: 20060311, end: 20060710

REACTIONS (9)
  - CELLULITIS [None]
  - ECCHYMOSIS [None]
  - ERYTHEMA [None]
  - NEUTROPENIA [None]
  - OEDEMA PERIPHERAL [None]
  - PETECHIAE [None]
  - TENDERNESS [None]
  - VASCULITIS [None]
  - WHITE BLOOD CELL COUNT DECREASED [None]
